FAERS Safety Report 8366568-8 (Version None)
Quarter: 2012Q2

REPORT INFORMATION
  Report Type: 
  Country: None (occurrence: None)
  Receive Date: 20120516
  Receipt Date: 20120516
  Transmission Date: 20120825
  Serious: Yes (Other)
  Sender: FDA-Public Use
  Company Number: None

PATIENT
  Sex: Male
  Weight: 77.5651 kg

DRUGS (8)
  1. MODAFINIL [Suspect]
     Indication: SLEEP APNOEA SYNDROME
     Dosage: 200 MG 1 X A DAY
     Dates: start: 20120504
  2. MODAFINIL [Suspect]
     Indication: NARCOLEPSY
     Dosage: 200 MG 1 X A DAY
     Dates: start: 20120504
  3. MODAFINIL [Suspect]
     Indication: SLEEP APNOEA SYNDROME
     Dosage: 200 MG 1 X A DAY
     Dates: start: 20120502
  4. MODAFINIL [Suspect]
     Indication: NARCOLEPSY
     Dosage: 200 MG 1 X A DAY
     Dates: start: 20120502
  5. MODAFINIL [Suspect]
     Indication: SLEEP APNOEA SYNDROME
     Dosage: 200 MG 1 X A DAY
     Dates: start: 20120507
  6. MODAFINIL [Suspect]
     Indication: NARCOLEPSY
     Dosage: 200 MG 1 X A DAY
     Dates: start: 20120507
  7. MODAFINIL [Suspect]
     Indication: SLEEP APNOEA SYNDROME
     Dosage: 200 MG 1 X A DAY
     Dates: start: 20120503
  8. MODAFINIL [Suspect]
     Indication: NARCOLEPSY
     Dosage: 200 MG 1 X A DAY
     Dates: start: 20120503

REACTIONS (4)
  - SOMNOLENCE [None]
  - INCORRECT DOSE ADMINISTERED [None]
  - DRUG INEFFECTIVE [None]
  - PRODUCT SUBSTITUTION ISSUE [None]
